FAERS Safety Report 25632299 (Version 1)
Quarter: 2025Q3

REPORT INFORMATION
  Report Type: Spontaneous
  Country: US (occurrence: None)
  Receive Date: 20250731
  Receipt Date: 20250731
  Transmission Date: 20251021
  Serious: No
  Sender: FDA-CTU
  Company Number: None

PATIENT
  Age: 43 Year
  Sex: Female
  Weight: 63 kg

DRUGS (1)
  1. MONISTAT 1 COMBINATION PACK [Suspect]
     Active Substance: MICONAZOLE NITRATE
     Dates: start: 20250725, end: 20250725

REACTIONS (3)
  - Vulvovaginal burning sensation [None]
  - Skin erosion [None]
  - Pain [None]

NARRATIVE: CASE EVENT DATE: 20250725
